FAERS Safety Report 6787468-0 (Version None)
Quarter: 2010Q2

REPORT INFORMATION
  Report Type: 
  Country: None (occurrence: None)
  Receive Date: 20100623
  Receipt Date: 20070410
  Transmission Date: 20101027
  Serious: No
  Sender: FDA-Public Use
  Company Number: US-PFIZER INC-2007029218

PATIENT
  Age: 48 Year
  Sex: Female
  Weight: 72.57 kg

DRUGS (3)
  1. DEPO-PROVERA SUSPENSION/INJ [Suspect]
     Indication: MENSTRUAL DISORDER
     Route: 030
     Dates: start: 20070301, end: 20070410
  2. ATENOLOL [Concomitant]
  3. VITAMIN B-12 [Concomitant]
     Dosage: ONE TIME

REACTIONS (6)
  - DYSMENORRHOEA [None]
  - FEELING ABNORMAL [None]
  - HAEMATOLOGY TEST ABNORMAL [None]
  - HAEMOGLOBIN DECREASED [None]
  - MENORRHAGIA [None]
  - UTERINE LEIOMYOMA [None]
